FAERS Safety Report 10861856 (Version 1)
Quarter: 2015Q1

REPORT INFORMATION
  Report Type: Spontaneous
  Country: FR (occurrence: FR)
  Receive Date: 20150224
  Receipt Date: 20150224
  Transmission Date: 20150721
  Serious: Yes (Hospitalization)
  Sender: FDA-Public Use
  Company Number: FR-ABBVIE-15P-056-1351333-00

PATIENT
  Sex: Male

DRUGS (2)
  1. MICROPAKINE L.P. [Suspect]
     Active Substance: VALPROIC ACID
     Indication: PRODUCT USED FOR UNKNOWN INDICATION
     Dosage: 500 MG; TWICE A DAY EXTENDED RELEASE TABLET
     Route: 048
  2. AMINO ACIDS [Concomitant]
     Active Substance: AMINO ACIDS
     Indication: PRODUCT USED FOR UNKNOWN INDICATION

REACTIONS (1)
  - Abnormal faeces [Unknown]
